FAERS Safety Report 20638719 (Version 1)
Quarter: 2022Q1

REPORT INFORMATION
  Report Type: Report from Study
  Country: CA (occurrence: CA)
  Receive Date: 20220325
  Receipt Date: 20220325
  Transmission Date: 20220423
  Serious: Yes (Hospitalization)
  Sender: FDA-Public Use
  Company Number: CA-TEVA-2022-CA-2020231

PATIENT
  Age: 51 Year
  Sex: Female

DRUGS (1)
  1. COPAXONE [Suspect]
     Active Substance: GLATIRAMER ACETATE
     Indication: Multiple sclerosis
     Route: 065
     Dates: start: 20151105, end: 20161021

REACTIONS (6)
  - Blood pressure decreased [Unknown]
  - Chest discomfort [Unknown]
  - Erythema [Unknown]
  - Swelling face [Unknown]
  - Tremor [Unknown]
  - Presyncope [Unknown]

NARRATIVE: CASE EVENT DATE: 20160121
